FAERS Safety Report 8438820-9 (Version None)
Quarter: 2012Q2

REPORT INFORMATION
  Report Type: 
  Country: None (occurrence: None)
  Receive Date: 20120608
  Receipt Date: 20120525
  Transmission Date: 20120825
  Serious: Yes (Other)
  Sender: FDA-Public Use
  Company Number: 2012SP020784

PATIENT
  Age: 51 Year
  Sex: Male
  Weight: 90.6 kg

DRUGS (16)
  1. GS-9451 [Suspect]
     Indication: HEPATITIS C
     Dosage: 2 DF;QD;PO
     Route: 048
     Dates: start: 20111229, end: 20120118
  2. GS-9451 [Suspect]
     Indication: HEPATITIS C
     Dosage: 2 DF;QD;PO
     Route: 048
     Dates: start: 20120119, end: 20120313
  3. METOPROLOL TARTRATE [Concomitant]
  4. SULINDAC [Concomitant]
  5. ZITHROMAX [Concomitant]
  6. RIBAVIRIN [Suspect]
     Indication: HEPATITIS C
     Dosage: 600 MG;BID;PO
     Route: 048
     Dates: start: 20111229, end: 20120118
  7. RIBAVIRIN [Suspect]
     Indication: HEPATITIS C
     Dosage: 600 MG;BID;PO
     Route: 048
     Dates: start: 20110119, end: 20120313
  8. PEGINTERFERON ALFA-2A [Suspect]
     Indication: HEPATITIS C
     Dosage: 180 MCG;QW;SC
     Route: 058
     Dates: start: 20120119, end: 20120309
  9. ASPIRIN [Concomitant]
  10. PLACEBO [Suspect]
     Indication: HEPATITIS C
     Dosage: 1 DF;BID;PO
     Route: 048
     Dates: start: 20111229, end: 20120118
  11. CODEINE [Concomitant]
  12. GS-5885 [Suspect]
     Indication: HEPATITIS C
     Dosage: DF;QD;PO
     Route: 048
     Dates: start: 20120119, end: 20120313
  13. GS-5885 [Suspect]
     Indication: HEPATITIS C
     Dosage: DF;QD;PO
     Route: 048
     Dates: start: 20111229, end: 20120118
  14. ACETAMINOPHEN [Concomitant]
  15. RANITIDINE [Concomitant]
  16. CELEXA [Concomitant]

REACTIONS (30)
  - OEDEMA [None]
  - MUSCULAR WEAKNESS [None]
  - SKIN OEDEMA [None]
  - EYELID PTOSIS [None]
  - RASH PRURITIC [None]
  - PERIPHERAL SENSORIMOTOR NEUROPATHY [None]
  - JOINT EFFUSION [None]
  - ERYTHEMA MULTIFORME [None]
  - SECRETION DISCHARGE [None]
  - STAPHYLOCOCCUS TEST POSITIVE [None]
  - RASH ERYTHEMATOUS [None]
  - SKIN LESION [None]
  - SCAB [None]
  - PARAESTHESIA [None]
  - FALL [None]
  - CELLULITIS [None]
  - DEMYELINATING POLYNEUROPATHY [None]
  - DERMATITIS ALLERGIC [None]
  - RASH MACULAR [None]
  - MOBILITY DECREASED [None]
  - HORNER'S SYNDROME [None]
  - EXCORIATION [None]
  - EAR PAIN [None]
  - NEPHROLITHIASIS [None]
  - JOINT SWELLING [None]
  - RASH PAPULAR [None]
  - INFECTION [None]
  - PERONEAL NERVE PALSY [None]
  - ORAL DISORDER [None]
  - DRUG HYPERSENSITIVITY [None]
